FAERS Safety Report 12973126 (Version 1)
Quarter: 2016Q4

REPORT INFORMATION
  Report Type: Spontaneous
  Country: CA (occurrence: CA)
  Receive Date: 20161124
  Receipt Date: 20161124
  Transmission Date: 20170207
  Serious: Yes (Hospitalization)
  Sender: FDA-Public Use
  Company Number: CA-ASTRAZENECA-2016SF22470

PATIENT
  Age: 82 Year
  Sex: Male

DRUGS (7)
  1. ATORVASTATIN CALCIUM. [Concomitant]
     Active Substance: ATORVASTATIN CALCIUM
  2. RAMIPRIL. [Concomitant]
     Active Substance: RAMIPRIL
  3. THYROXINE [Concomitant]
     Active Substance: LEVOTHYROXINE
  4. METOPROLOL. [Concomitant]
     Active Substance: METOPROLOL
  5. BRILINTA [Suspect]
     Active Substance: TICAGRELOR
     Indication: STENT PLACEMENT
     Dosage: 90 MG, EVERY 12 HOURS
     Route: 048
  6. NITROGLYCERIN. [Concomitant]
     Active Substance: NITROGLYCERIN
  7. PREDNISONE. [Concomitant]
     Active Substance: PREDNISONE

REACTIONS (4)
  - Abdominal pain [Recovered/Resolved]
  - Condition aggravated [Recovered/Resolved]
  - Chest pain [Recovered/Resolved]
  - Dyspnoea exertional [Recovered/Resolved]
